FAERS Safety Report 6857371-6 (Version None)
Quarter: 2010Q3

REPORT INFORMATION
  Report Type: 
  Country: None (occurrence: None)
  Receive Date: 20100719
  Receipt Date: 20100707
  Transmission Date: 20110219
  Serious: Yes (Hospitalization)
  Sender: FDA-Public Use
  Company Number: DE-PFIZER INC-2010084438

PATIENT
  Age: 46 Year
  Sex: Female
  Weight: 51 kg

DRUGS (6)
  1. BLINDED *NO SUBJECT DRUG [Suspect]
     Indication: RENAL CELL CARCINOMA
     Dosage: 50 MG, 1X/DAY, SCHEDULE 4/2
     Route: 048
     Dates: start: 20090709, end: 20100706
  2. BLINDED *PLACEBO [Suspect]
     Indication: RENAL CELL CARCINOMA
     Dosage: 50 MG, 1X/DAY, SCHEDULE 4/2
     Route: 048
     Dates: start: 20090709, end: 20100706
  3. SUNITINIB MALATE [Suspect]
     Indication: RENAL CELL CARCINOMA
     Dosage: 50 MG, 1X/DAY, SCHEDULE 4/2
     Route: 048
     Dates: start: 20090709, end: 20100706
  4. LEVOTHYROXINE SODIUM [Concomitant]
     Indication: HYPOTHYROIDISM
     Dosage: 25 UG, 1X/DAY
     Route: 048
     Dates: start: 20100504
  5. PARACETAMOL [Concomitant]
     Indication: PALMAR-PLANTAR ERYTHRODYSAESTHESIA SYNDROME
     Dosage: 650 MG, AS NEEDED
     Route: 048
     Dates: start: 20100315
  6. EUPHRASIA EXTRACT [Concomitant]
     Indication: EYE IRRITATION
     Dosage: UNK

REACTIONS (1)
  - ELECTROCARDIOGRAM ABNORMAL [None]
